FAERS Safety Report 7951237-6 (Version None)
Quarter: 2011Q4

REPORT INFORMATION
  Report Type: 
  Country: None (occurrence: None)
  Receive Date: 20111201
  Receipt Date: 20111123
  Transmission Date: 20120403
  Serious: Yes (Other)
  Sender: FDA-Public Use
  Company Number: PHFR2011IE04823

PATIENT
  Sex: Female

DRUGS (5)
  1. THIAMINE HCL [Concomitant]
     Dosage: 100 MG, TID
     Route: 048
  2. OROVITE [Concomitant]
     Dosage: ONCE DAILY
     Route: 048
  3. LACTULOSE [Concomitant]
     Dosage: 15 MG, BID
     Route: 048
  4. CLOZARIL [Suspect]
     Indication: SCHIZOPHRENIA
     Dosage: 200 MG, BID
     Route: 048
     Dates: start: 20031201
  5. VENLAFAXINE [Concomitant]
     Indication: DEPRESSION
     Dosage: 225 MG, ONCE DAILY
     Route: 048

REACTIONS (3)
  - ANKLE FRACTURE [None]
  - VOMITING [None]
  - WHITE BLOOD CELL COUNT INCREASED [None]
